FAERS Safety Report 8811233 (Version 1)
Quarter: 2012Q4

REPORT INFORMATION
  Report Type: 
  Country: JP (occurrence: JP)
  Receive Date: 20120927
  Receipt Date: 20120927
  Transmission Date: 20130627
  Serious: Yes (Hospitalization, Other)
  Sender: FDA-Public Use
  Company Number: JP-SANOFI-AVENTIS-2012SA069856

PATIENT
  Age: 66 Year
  Sex: Male

DRUGS (13)
  1. TAXOTERE [Suspect]
     Indication: LUNG SQUAMOUS CELL CARCINOMA STAGE IV
     Route: 042
     Dates: start: 20101020, end: 20101020
  2. CARBOPLATIN [Suspect]
     Indication: METASTASES TO EYE
     Route: 065
  3. CARBOPLATIN [Suspect]
     Indication: LUNG SQUAMOUS CELL CARCINOMA STAGE IV
     Route: 065
  4. CARBOPLATIN [Suspect]
     Indication: METASTASES TO EYE
     Route: 065
  5. CARBOPLATIN [Suspect]
     Indication: LUNG SQUAMOUS CELL CARCINOMA STAGE IV
     Route: 065
  6. CARBOPLATIN [Suspect]
     Indication: METASTASES TO EYE
     Dosage: 1-2 cycles
     Route: 065
  7. CARBOPLATIN [Suspect]
     Indication: LUNG SQUAMOUS CELL CARCINOMA STAGE IV
     Dosage: 1-2 cycles
     Route: 065
  8. GIMERACIL/OTERACIL POTASSIUM/TEGAFUR [Suspect]
     Indication: METASTASES TO EYE
     Dosage: cycle 1 and 2
     Route: 065
  9. GIMERACIL/OTERACIL POTASSIUM/TEGAFUR [Suspect]
     Indication: LUNG SQUAMOUS CELL CARCINOMA STAGE IV
     Dosage: cycle 1 and 2
     Route: 065
  10. GIMERACIL/OTERACIL POTASSIUM/TEGAFUR [Suspect]
     Indication: METASTASES TO EYE
     Route: 065
  11. GIMERACIL/OTERACIL POTASSIUM/TEGAFUR [Suspect]
     Indication: LUNG SQUAMOUS CELL CARCINOMA STAGE IV
     Route: 065
  12. CISPLATIN [Concomitant]
     Indication: LUNG SQUAMOUS CELL CARCINOMA STAGE IV
     Route: 065
     Dates: start: 20101020, end: 20101020
  13. THERAPEUTIC RADIOPHARMACEUTICALS [Concomitant]
     Indication: METASTASES TO EYE

REACTIONS (3)
  - Cholestasis [Recovered/Resolved]
  - Blood bilirubin increased [Recovered/Resolved]
  - Bone marrow failure [Unknown]
